FAERS Safety Report 20438820 (Version 1)
Quarter: 2022Q1

REPORT INFORMATION
  Report Type: Spontaneous
  Country: US (occurrence: None)
  Receive Date: 20220204
  Receipt Date: 20220204
  Transmission Date: 20220423
  Serious: Yes (Hospitalization)
  Sender: FDA-Public Use
  Company Number: None

PATIENT
  Sex: Female

DRUGS (12)
  1. ESBRIET [Suspect]
     Active Substance: PIRFENIDONE
     Indication: Idiopathic pulmonary fibrosis
     Dosage: FREQUENCY : 3 TIMES A DAY;?
     Route: 048
     Dates: start: 20211208
  2. ADVAIR DISKU AER [Concomitant]
  3. AZITHROMYCIN [Concomitant]
     Active Substance: AZITHROMYCIN
  4. BUSPIRONE [Concomitant]
     Active Substance: BUSPIRONE HYDROCHLORIDE
  5. GABAPENTIN [Concomitant]
     Active Substance: GABAPENTIN
  6. LANSOPRAZOLE [Concomitant]
     Active Substance: LANSOPRAZOLE
  7. NAC [Concomitant]
  8. NALOXONE [Concomitant]
     Active Substance: NALOXONE
  9. OFEV [Concomitant]
     Active Substance: NINTEDANIB
  10. OXYCODONE [Concomitant]
     Active Substance: OXYCODONE
  11. PREDNISONE [Concomitant]
     Active Substance: PREDNISONE
  12. RANITIDINE [Concomitant]
     Active Substance: RANITIDINE

REACTIONS (6)
  - Idiopathic pulmonary fibrosis [None]
  - COVID-19 pneumonia [None]
  - Dizziness [None]
  - Vision blurred [None]
  - Abdominal distension [None]
  - Arthralgia [None]
